FAERS Safety Report 19776416 (Version 6)
Quarter: 2021Q4

REPORT INFORMATION
  Report Type: Spontaneous
  Country: JP (occurrence: JP)
  Receive Date: 20210901
  Receipt Date: 20211124
  Transmission Date: 20220303
  Serious: Yes (Other)
  Sender: FDA-Public Use
  Company Number: JP-GSKNCCC-CASE-01290414_AE-48772

PATIENT
  Age: 71 Year
  Sex: Female
  Weight: 45.75 kg

DRUGS (3)
  1. SERETIDE [Suspect]
     Active Substance: FLUTICASONE PROPIONATE\SALMETEROL XINAFOATE
     Indication: Asthma
     Dosage: 1 INHALATION, BID (MORNING AND EVENING)
     Route: 055
     Dates: start: 20210315, end: 20210607
  2. FEXOFENADINE HYDROCHLORIDE [Concomitant]
     Active Substance: FEXOFENADINE HYDROCHLORIDE
     Indication: Asthma
     Dosage: 60 MG, BID
     Route: 048
     Dates: start: 20210329, end: 20210510
  3. SPIRIVA INHALATION CAPSULES [Concomitant]
     Indication: Asthma
     Dosage: 1 DF (1 CAPSULE), QD
     Route: 055
     Dates: start: 20210315

REACTIONS (4)
  - Pneumonia [Unknown]
  - Asthenia [Unknown]
  - Nasopharyngitis [Unknown]
  - Bronchitis [Recovered/Resolved]

NARRATIVE: CASE EVENT DATE: 20210329
